FAERS Safety Report 5113041-6 (Version None)
Quarter: 2006Q3

REPORT INFORMATION
  Report Type: 
  Country: None (occurrence: None)
  Receive Date: 20060922
  Receipt Date: 20060914
  Transmission Date: 20061208
  Serious: Yes (Death, Other)
  Sender: FDA-Public Use
  Company Number: FR-BOEHRINGER INGELHEIM PHARMACEUTICALS, INC.-2006-DE-04949GD

PATIENT
  Sex: Male

DRUGS (6)
  1. TIPRANAVIR [Suspect]
     Indication: HIV INFECTION
  2. ABACAVIR [Suspect]
     Indication: HIV INFECTION
  3. STAVUDINE [Suspect]
     Indication: HIV INFECTION
  4. LAMIVUDINE [Suspect]
     Indication: HIV INFECTION
  5. ENFUVIRTIDE [Suspect]
     Indication: HIV INFECTION
  6. FOSCARNET [Suspect]
     Indication: HIV INFECTION
     Route: 042

REACTIONS (8)
  - DRUG RESISTANCE [None]
  - HIV INFECTION [None]
  - IMMUNODEFICIENCY [None]
  - MULTIPLE-DRUG RESISTANCE [None]
  - OEDEMA [None]
  - PROTEINURIA [None]
  - RENAL IMPAIRMENT [None]
  - VIRAL MUTATION IDENTIFIED [None]
